FAERS Safety Report 24219129 (Version 2)
Quarter: 2024Q3

REPORT INFORMATION
  Report Type: Report from Study
  Country: NL (occurrence: NL)
  Receive Date: 20240816
  Receipt Date: 20240826
  Transmission Date: 20241017
  Serious: Yes (Death, Other)
  Sender: IPSEN
  Company Number: NL-IPSEN Group, Research and Development-2024-16156

PATIENT
  Age: 78 Year
  Sex: Female

DRUGS (3)
  1. LANREOTIDE ACETATE [Suspect]
     Active Substance: LANREOTIDE ACETATE
     Indication: Flushing
     Dosage: 1.00 X PER 3 WEEKS
     Route: 058
     Dates: start: 20140307
  2. LANREOTIDE ACETATE [Suspect]
     Active Substance: LANREOTIDE ACETATE
     Indication: Off label use
     Dosage: 1.00 X PER 3 WEEKS
     Route: 058
     Dates: start: 20240718
  3. LANREOTIDE ACETATE [Suspect]
     Active Substance: LANREOTIDE ACETATE
     Dosage: 1.00 X PER 3 WEEKS
     Route: 058
     Dates: start: 20240806

REACTIONS (2)
  - Death [Fatal]
  - Off label use [Unknown]

NARRATIVE: CASE EVENT DATE: 20240801
